FAERS Safety Report 10136934 (Version 1)
Quarter: 2014Q2

REPORT INFORMATION
  Report Type: Spontaneous
  Country: CH (occurrence: None)
  Receive Date: 20140425
  Receipt Date: 20140425
  Transmission Date: 20141212
  Serious: Yes (Hospitalization)
  Sender: FDA-Public Use
  Company Number: 20140224

PATIENT
  Age: 39 Year
  Sex: Female

DRUGS (1)
  1. FERINJECT [Suspect]
     Indication: IRON DEFICIENCY ANAEMIA
     Route: 042
     Dates: start: 20140306, end: 20140306

REACTIONS (10)
  - Headache [None]
  - Abdominal pain [None]
  - Depressed level of consciousness [None]
  - Hypotension [None]
  - Pyrexia [None]
  - Seizure like phenomena [None]
  - Pain [None]
  - Chest pain [None]
  - White blood cell count increased [None]
  - C-reactive protein increased [None]
